FAERS Safety Report 15906061 (Version 1)
Quarter: 2019Q1

REPORT INFORMATION
  Report Type: Report from Study
  Country: US (occurrence: US)
  Receive Date: 20190204
  Receipt Date: 20190204
  Transmission Date: 20190417
  Serious: Yes (Other)
  Sender: FDA-Public Use
  Company Number: US-JAZZ-2019-US-000992

PATIENT
  Age: 49 Year
  Sex: Male

DRUGS (11)
  1. NUVIGIL [Concomitant]
     Active Substance: ARMODAFINIL
  2. NORCO [Concomitant]
     Active Substance: ACETAMINOPHEN\HYDROCODONE BITARTRATE
  3. XYREM [Suspect]
     Active Substance: SODIUM OXYBATE
     Dosage: DOSE ADJUSTMENT
     Route: 048
     Dates: start: 201812, end: 201901
  4. XYREM [Suspect]
     Active Substance: SODIUM OXYBATE
     Dosage: 4.5 G, BID
     Route: 048
     Dates: start: 201901
  5. NAPROXEN. [Concomitant]
     Active Substance: NAPROXEN
  6. PROAIR HFA [Concomitant]
     Active Substance: ALBUTEROL SULFATE
  7. VALIUM [Concomitant]
     Active Substance: DIAZEPAM
  8. LEVOCETIRIZINE [Concomitant]
     Active Substance: LEVOCETIRIZINE
  9. OMEPRAZOLE. [Concomitant]
     Active Substance: OMEPRAZOLE
  10. TIZANIDINE HCL [Concomitant]
     Active Substance: TIZANIDINE HYDROCHLORIDE
  11. XYREM [Suspect]
     Active Substance: SODIUM OXYBATE
     Indication: NARCOLEPSY
     Dosage: 2.25 G, BID
     Route: 048
     Dates: start: 201812, end: 201812

REACTIONS (5)
  - Tinnitus [Unknown]
  - Blood pressure increased [Recovered/Resolved]
  - Speech disorder [Unknown]
  - Moaning [Unknown]
  - Dizziness [Unknown]

NARRATIVE: CASE EVENT DATE: 201812
